FAERS Safety Report 7280859-3 (Version None)
Quarter: 2011Q1

REPORT INFORMATION
  Report Type: 
  Country: None (occurrence: None)
  Receive Date: 20110208
  Receipt Date: 20110203
  Transmission Date: 20110831
  Serious: Yes (Other)
  Sender: FDA-Public Use
  Company Number: US-PFIZER INC-2010079684

PATIENT
  Sex: Female

DRUGS (6)
  1. SOMA [Concomitant]
     Indication: MUSCLE SPASMS
     Dosage: UNK
     Dates: start: 19770101
  2. CHANTIX [Suspect]
     Indication: SMOKING CESSATION THERAPY
     Dosage: 0.5 AND 1 MG
     Dates: start: 20060901, end: 20061101
  3. GLUCOPHAGE [Concomitant]
     Indication: DIABETES MELLITUS
     Dosage: UNK
     Dates: start: 20060101
  4. ALPRAZOLAM [Concomitant]
     Indication: ANXIETY
     Dosage: UNK
     Dates: start: 20070101
  5. CHANTIX [Suspect]
     Dosage: 0.5 AND 1 MG
     Dates: start: 20080201, end: 20080101
  6. HYDROCODONE [Concomitant]
     Indication: BACK PAIN
     Dosage: UNK
     Dates: start: 19770101

REACTIONS (6)
  - MENTAL DISORDER [None]
  - SUICIDAL IDEATION [None]
  - LOSS OF CONSCIOUSNESS [None]
  - DEPRESSION [None]
  - INJURY [None]
  - ANXIETY [None]
